FAERS Safety Report 5949618-5 (Version None)
Quarter: 2008Q4

REPORT INFORMATION
  Report Type: 
  Country: None (occurrence: None)
  Receive Date: 20081112
  Receipt Date: 20081104
  Transmission Date: 20090506
  Serious: Yes (Other)
  Sender: FDA-Public Use
  Company Number: US-JNJFOC-20081101545

PATIENT
  Age: 2 Year
  Sex: Female

DRUGS (1)
  1. EXTRA STRENGTH TYLENOL [Suspect]
     Indication: ACCIDENTAL EXPOSURE
     Dosage: 1-3 CAPLETS
     Route: 048

REACTIONS (2)
  - ACCIDENTAL DRUG INTAKE BY CHILD [None]
  - ACCIDENTAL OVERDOSE [None]
